FAERS Safety Report 7455746-8 (Version None)
Quarter: 2011Q2

REPORT INFORMATION
  Report Type: 
  Country: None (occurrence: None)
  Receive Date: 20110503
  Receipt Date: 20110420
  Transmission Date: 20111010
  Serious: Yes (Death, Hospitalization)
  Sender: FDA-Public Use
  Company Number: US-EISAI INC-E7273-00216-CLI-US

PATIENT
  Sex: Female
  Weight: 63 kg

DRUGS (2)
  1. TARGRETIN [Suspect]
     Route: 048
     Dates: start: 20110210, end: 20110302
  2. TARGRETIN [Suspect]
     Route: 048
     Dates: start: 20110323, end: 20110331

REACTIONS (4)
  - STAPHYLOCOCCAL BACTERAEMIA [None]
  - DEHYDRATION [None]
  - HEADACHE [None]
  - SUBDURAL HAEMATOMA [None]
